FAERS Safety Report 6908127-7 (Version None)
Quarter: 2010Q3

REPORT INFORMATION
  Report Type: 
  Country: None (occurrence: None)
  Receive Date: 20100716
  Receipt Date: 20100202
  Transmission Date: 20110219
  Serious: Yes (Other)
  Sender: FDA-Public Use
  Company Number: 2010013837

PATIENT
  Age: 62 Year
  Sex: Female

DRUGS (2)
  1. CELEBREX [Suspect]
     Indication: PAIN
     Dosage: 400 MG, DAILY, ORAL
     Route: 048
  2. CELEBREX [Suspect]
     Indication: RHEUMATOID ARTHRITIS
     Dosage: 400 MG, DAILY, ORAL
     Route: 048

REACTIONS (1)
  - ACUTE MYOCARDIAL INFARCTION [None]
